FAERS Safety Report 4878436-4 (Version None)
Quarter: 2005Q4

REPORT INFORMATION
  Report Type: 
  Country: None (occurrence: None)
  Receive Date: 20051209
  Receipt Date: 20050416
  Transmission Date: 20060501
  Serious: Yes (Other)
  Sender: FDA-Public Use
  Company Number: USA-2005-0019857

PATIENT
  Sex: Male

DRUGS (1)
  1. OXYCONTIN [Suspect]
     Dosage: 160 MG, SINGLE, UNKNOWN
     Route: 065

REACTIONS (2)
  - OVERDOSE [None]
  - SOMNOLENCE [None]
